FAERS Safety Report 23463185 (Version 2)
Quarter: 2024Q2

REPORT INFORMATION
  Report Type: Spontaneous
  Country: US (occurrence: US)
  Receive Date: 20240131
  Receipt Date: 20240425
  Transmission Date: 20240715
  Serious: Yes (Death, Hospitalization, Other)
  Sender: FDA-Public Use
  Company Number: US-PFIZER INC-PV202400013540

PATIENT
  Age: 71 Year
  Sex: Male
  Weight: 68.934 kg

DRUGS (1)
  1. IBRANCE [Suspect]
     Active Substance: PALBOCICLIB
     Indication: Breast cancer male
     Dosage: 125 MG
     Dates: start: 20231101

REACTIONS (2)
  - Suicidal ideation [Fatal]
  - Upper limb fracture [Unknown]

NARRATIVE: CASE EVENT DATE: 20230101
